FAERS Safety Report 22244255 (Version 1)
Quarter: 2023Q2

REPORT INFORMATION
  Report Type: Spontaneous
  Country: US (occurrence: None)
  Receive Date: 20230422
  Receipt Date: 20230422
  Transmission Date: 20230722
  Serious: Yes (Other)
  Sender: FDA-Public Use
  Company Number: None

PATIENT
  Age: 35 Year
  Sex: Female
  Weight: 56.25 kg

DRUGS (1)
  1. METRONIDAZOLE [Suspect]
     Active Substance: METRONIDAZOLE
     Indication: Bacterial vaginosis
     Dates: start: 20230326, end: 20230401

REACTIONS (4)
  - Chromaturia [None]
  - Glucose urine present [None]
  - Urine ketone body present [None]
  - Muscle spasms [None]

NARRATIVE: CASE EVENT DATE: 20230330
